FAERS Safety Report 5089061-7 (Version None)
Quarter: 2006Q3

REPORT INFORMATION
  Report Type: 
  Country: None (occurrence: None)
  Receive Date: 20060825
  Receipt Date: 20060822
  Transmission Date: 20061208
  Serious: Yes (Other)
  Sender: FDA-Public Use
  Company Number: US-GLAXOSMITHKLINE-A0617642A

PATIENT
  Sex: Female

DRUGS (11)
  1. CITRUCEL REGULAR SUSPENSION [Suspect]
     Dosage: 1Z PER DAY
     Route: 048
     Dates: end: 20060820
  2. MULTI-VITAMIN [Concomitant]
  3. LEVOTHYROXINE SODIUM [Concomitant]
     Dosage: 150MG PER DAY
  4. FUROSEMIDE [Concomitant]
     Dosage: 40MG PER DAY
  5. SPIRONOLACTONE [Concomitant]
     Dosage: 25MG PER DAY
  6. POTASSIUM [Concomitant]
     Dosage: 500MG FOUR TIMES PER DAY
  7. CALCIUM GLUCONATE [Concomitant]
  8. ASCORBIC ACID [Concomitant]
     Dosage: 500MG PER DAY
  9. TYLENOL [Concomitant]
  10. COUMADIN [Concomitant]
     Dosage: 2MG WEEKLY
  11. QVAR 40 [Concomitant]
     Route: 055

REACTIONS (6)
  - CARDIAC VALVE DISEASE [None]
  - CONTUSION [None]
  - FAECAL INCONTINENCE [None]
  - FALL [None]
  - MUSCULOSKELETAL DISORDER [None]
  - OEDEMA PERIPHERAL [None]
